FAERS Safety Report 6839037-1 (Version None)
Quarter: 2010Q3

REPORT INFORMATION
  Report Type: 
  Country: None (occurrence: None)
  Receive Date: 20100714
  Receipt Date: 20100309
  Transmission Date: 20110219
  Serious: Yes (Other)
  Sender: FDA-Public Use
  Company Number: US-ASTRAZENECA-2009SE21570

PATIENT
  Age: 18166 Day
  Sex: Male
  Weight: 114.3 kg

DRUGS (11)
  1. SEROQUEL [Suspect]
     Indication: BIPOLAR DISORDER
     Route: 048
     Dates: start: 20050301
  2. SEROQUEL [Suspect]
     Route: 048
     Dates: start: 20050301
  3. SEROQUEL [Suspect]
     Dosage: 100 MG TO 400 MG
     Route: 048
     Dates: start: 20050301
  4. GEODON [Concomitant]
     Dates: start: 20070101
  5. RISPERDAL [Concomitant]
     Dates: start: 20030101
  6. PAXIL [Concomitant]
     Dates: start: 20020101, end: 20090101
  7. PAXIL [Concomitant]
     Dosage: 20 MG TWO TAB PO QAM
     Route: 048
     Dates: start: 20050322
  8. XANAX [Concomitant]
     Dates: start: 20020101
  9. TRAZODONE HCL [Concomitant]
     Dates: start: 20030101
  10. CLONAZEPAM [Concomitant]
     Route: 048
     Dates: start: 20050301
  11. PERCOCET [Concomitant]
     Dosage: 7.5/325 ONE PO Q 6 H PRN
     Route: 048
     Dates: start: 20070330

REACTIONS (4)
  - HYPERGLYCAEMIA [None]
  - INSOMNIA [None]
  - ROAD TRAFFIC ACCIDENT [None]
  - TYPE 2 DIABETES MELLITUS [None]
